FAERS Safety Report 8540541-9 (Version None)
Quarter: 2012Q3

REPORT INFORMATION
  Report Type: 
  Country: None (occurrence: None)
  Receive Date: 20120726
  Receipt Date: 20110817
  Transmission Date: 20120928
  Serious: No
  Sender: FDA-Public Use
  Company Number: US-ASTRAZENECA-2011SE47100

PATIENT
  Age: 68 Year
  Sex: Female

DRUGS (6)
  1. SEROQUEL [Suspect]
     Dosage: SPLIT THE TABLET AND TOOK DURING DAY
     Route: 048
  2. KLONOPIN [Concomitant]
  3. SEROQUEL [Suspect]
     Indication: BIPOLAR DISORDER
     Route: 048
     Dates: start: 20100101
  4. LITHIUM CARBONATE [Concomitant]
  5. LAMICTAL [Concomitant]
  6. SEROQUEL [Suspect]
     Route: 048

REACTIONS (6)
  - AMNESIA [None]
  - WRONG TECHNIQUE IN DRUG USAGE PROCESS [None]
  - RENAL DISORDER [None]
  - MALAISE [None]
  - FATIGUE [None]
  - LETHARGY [None]
